FAERS Safety Report 4362240-X (Version None)
Quarter: 2004Q2

REPORT INFORMATION
  Report Type: 
  Country: None (occurrence: None)
  Receive Date: 20040517
  Receipt Date: 20040430
  Transmission Date: 20050107
  Serious: Yes (Hospitalization, Congenital Anomaly)
  Sender: FDA-Public Use
  Company Number: 310013K04USA

PATIENT
  Age: 1 Day
  Sex: Female

DRUGS (5)
  1. GONAL-F (FOLLITROPIN ALFA FOR INJECTION) (FOLLITROPAN ALFA) [Suspect]
     Indication: INFERTILITY
     Dates: start: 19991101
  2. GONADROTROPINS [Suspect]
     Dates: start: 19991101
  3. LEUPROLIDE ACETATE [Suspect]
     Dates: start: 19991101
  4. PROGESTERONE [Suspect]
     Dates: start: 19990101
  5. OVIDREL (CHROIOGONADROTROPIN ALFA FOR INJECTION) (CHORIONIC GONDATROPH [Suspect]
     Indication: INFERTILITY
     Dates: start: 19991101

REACTIONS (10)
  - CHROMOSOME ABNORMALITY [None]
  - DRUG EXPOSURE DURING PREGNANCY [None]
  - DYSPHAGIA [None]
  - EYELID PTOSIS [None]
  - FUNDOPLICATION [None]
  - GASTRIC DISORDER [None]
  - GROWTH RETARDATION [None]
  - HEMIHYPERTROPHY [None]
  - HYPOTONIA [None]
  - RESPIRATORY ARREST [None]
